FAERS Safety Report 6362558-5 (Version None)
Quarter: 2009Q3

REPORT INFORMATION
  Report Type: 
  Country: None (occurrence: None)
  Receive Date: 20090918
  Receipt Date: 20090603
  Transmission Date: 20100115
  Serious: No
  Sender: FDA-Public Use
  Company Number: US-ABBOTT-09P-163-0577818-00

PATIENT
  Sex: Male

DRUGS (2)
  1. HUMIRA [Suspect]
     Indication: PSORIASIS
     Route: 058
     Dates: start: 20080101, end: 20090501
  2. UNKNOWN HAIR TREATMENT [Suspect]
     Indication: DRUG USE FOR UNKNOWN INDICATION
     Dates: start: 20090531, end: 20090531

REACTIONS (4)
  - INCORRECT DRUG ADMINISTRATION DURATION [None]
  - PRURITUS [None]
  - SKIN DISORDER [None]
  - SWELLING FACE [None]
